FAERS Safety Report 4462676-2 (Version None)
Quarter: 2004Q3

REPORT INFORMATION
  Report Type: 
  Country: None (occurrence: None)
  Receive Date: 20040927
  Receipt Date: 20040913
  Transmission Date: 20050211
  Serious: Yes (Other)
  Sender: FDA-Public Use
  Company Number: US-JNJFOC-20040904432

PATIENT
  Age: 67 Year
  Sex: Female

DRUGS (2)
  1. TYLENOL (GELTAB) [Suspect]
     Indication: PAIN
     Dosage: 650 MG,  1 IN 1 TOTAL, ORAL
     Route: 048
     Dates: start: 20040906, end: 20040906
  2. BLOOD PRESSURE MEDICATION (ANTIHYPERTENSIVES) [Concomitant]

REACTIONS (3)
  - DYSPHAGIA [None]
  - FOREIGN BODY TRAUMA [None]
  - OESOPHAGEAL DISORDER [None]
